FAERS Safety Report 8239270 (Version 2)
Quarter: 2012Q4

REPORT INFORMATION
  Report Type: 
  Country: US (occurrence: US)
  Receive Date: 20111110
  Receipt Date: 20120919
  Transmission Date: 20130627
  Serious: Yes (Hospitalization, Other)
  Sender: FDA-Public Use
  Company Number: US-ELI_LILLY_AND_COMPANY-US201103009012

PATIENT
  Age: 76 Year
  Sex: Female

DRUGS (2)
  1. FORTEO [Suspect]
     Dosage: 20 ug, qd
     Route: 058
     Dates: start: 20110125
  2. FORTEO [Suspect]
     Dosage: 20 ug, qd
     Route: 058

REACTIONS (7)
  - Pelvic fracture [Unknown]
  - Fall [Unknown]
  - Colon cancer stage II [Unknown]
  - Diabetes mellitus [Unknown]
  - Blood glucose decreased [Unknown]
  - Arthritis [Unknown]
  - Back pain [Unknown]
